FAERS Safety Report 11554113 (Version 2)
Quarter: 2015Q4

REPORT INFORMATION
  Report Type: Spontaneous
  Country: US (occurrence: US)
  Receive Date: 20150925
  Receipt Date: 20151021
  Transmission Date: 20160304
  Serious: No
  Sender: FDA-Public Use
  Company Number: US-PFIZER INC-2015322118

PATIENT
  Sex: Female

DRUGS (1)
  1. LIPITOR [Suspect]
     Active Substance: ATORVASTATIN CALCIUM
     Dosage: UNK
     Dates: start: 201312

REACTIONS (4)
  - Blood creatinine increased [Unknown]
  - Blood urea increased [Unknown]
  - Blood calcium increased [Recovered/Resolved]
  - Muscle spasms [Unknown]
